FAERS Safety Report 8891461 (Version 1)
Quarter: 2012Q4

REPORT INFORMATION
  Report Type: 
  Country: US (occurrence: US)
  Receive Date: 20121107
  Receipt Date: 20121107
  Transmission Date: 20130627
  Serious: Yes (Hospitalization)
  Sender: FDA-Public Use
  Company Number: US-PFIZER INC-2012277234

PATIENT
  Sex: Female

DRUGS (2)
  1. LYRICA [Suspect]
     Dosage: UNK
  2. SPIRIVA [Suspect]
     Dosage: UNK

REACTIONS (1)
  - Pain [Unknown]
